FAERS Safety Report 12814959 (Version 1)
Quarter: 2016Q4

REPORT INFORMATION
  Report Type: Spontaneous
  Country: US (occurrence: US)
  Receive Date: 20161005
  Receipt Date: 20161005
  Transmission Date: 20170207
  Serious: No
  Sender: FDA-Public Use
  Company Number: US-AMGEN-USASP2016006109

PATIENT
  Age: 55 Year
  Sex: Female

DRUGS (2)
  1. CRANBERRY                          /01512301/ [Concomitant]
     Active Substance: CRANBERRY
     Dosage: UNK UNK, QD
  2. PROLIA [Suspect]
     Active Substance: DENOSUMAB
     Indication: PRODUCT USED FOR UNKNOWN INDICATION
     Dosage: UNK
     Route: 065
     Dates: start: 20151230

REACTIONS (3)
  - Pain [Unknown]
  - Back pain [Unknown]
  - Dry skin [Unknown]
